FAERS Safety Report 5819818-3 (Version None)
Quarter: 2008Q3

REPORT INFORMATION
  Report Type: 
  Country: None (occurrence: None)
  Receive Date: 20080723
  Receipt Date: 20080715
  Transmission Date: 20090109
  Serious: Yes (Other)
  Sender: FDA-Public Use
  Company Number: AU-PFIZER INC-2008059501

PATIENT
  Age: 15 Month
  Sex: Female
  Weight: 9 kg

DRUGS (3)
  1. DIFLUCAN [Suspect]
     Indication: FUNGAL SEPSIS
     Route: 048
  2. AMLODIPINE [Concomitant]
     Dosage: DAILY DOSE:4MG
  3. DRUG, UNSPECIFIED [Concomitant]

REACTIONS (1)
  - HYPOKALAEMIA [None]
